FAERS Safety Report 9623300 (Version 2)
Quarter: 2013Q4

REPORT INFORMATION
  Report Type: Spontaneous
  Country: US (occurrence: None)
  Receive Date: 20131010
  Receipt Date: 20131021
  Transmission Date: 20140711
  Serious: Yes (Hospitalization, Other)
  Sender: FDA-Public Use
  Company Number: KAD201310-001302

PATIENT
  Age: 54 Year
  Sex: Male

DRUGS (5)
  1. INTERFERON ALFACON-1 [Suspect]
     Indication: HEPATITIS C
     Dates: start: 1998
  2. RIBAVIRIN (RIBAVIRIN) [Suspect]
     Indication: HEPATITIS C
     Dates: start: 200906
  3. PEG-INTERFERON ALFA-2 [Suspect]
     Indication: HEPATITIS C
     Dates: start: 200906
  4. TACROLIMUS (TACROLIMUS) [Suspect]
     Indication: HEPATITIS C
  5. BOCEPREVIR (BOCEPREVIR) [Suspect]

REACTIONS (13)
  - Anaemia [None]
  - Syncope [None]
  - Hepatitis C [None]
  - Liver disorder [None]
  - Disease progression [None]
  - Liver transplant [None]
  - Hepatitis chronic active [None]
  - Hepatic fibrosis [None]
  - Hepatic cirrhosis [None]
  - Fatigue [None]
  - Hepatic encephalopathy [None]
  - Portal hypertension [None]
  - Ascites [None]
